FAERS Safety Report 9214681 (Version 1)
Quarter: 2013Q2

REPORT INFORMATION
  Report Type: Spontaneous
  Country: IT (occurrence: IT)
  Receive Date: 20130405
  Receipt Date: 20130405
  Transmission Date: 20140414
  Serious: Yes (Hospitalization)
  Sender: FDA-Public Use
  Company Number: IT-BAYER-2013-041763

PATIENT
  Age: 69 Year
  Sex: Male

DRUGS (6)
  1. CARDIOASPIRIN [Suspect]
     Indication: MYOCARDIAL ISCHAEMIA
     Dosage: 100 MG, QD
     Route: 048
     Dates: start: 20081218, end: 20130226
  2. RAMIPRIL [Concomitant]
     Dosage: DAILY DOSE 2.5 MG
     Route: 048
  3. OMEGA-3 FATTY ACIDS [Concomitant]
  4. BISOPROLOL [BISOPROLOL HEMIFUMARATE] [Concomitant]
     Dosage: DAILY DOSE 2.5 MG
     Route: 048
  5. TICAGRELOR [Concomitant]
     Dosage: DAILY DOSE 180 MG
     Route: 048
  6. TORVAST [Concomitant]
     Dosage: DAILY DOSE 80 MG
     Route: 048

REACTIONS (2)
  - Microcytic anaemia [Recovering/Resolving]
  - Adverse event [Recovering/Resolving]
